FAERS Safety Report 8922700 (Version 1)
Quarter: 2012Q4

REPORT INFORMATION
  Report Type: 
  Country: EC (occurrence: EC)
  Receive Date: 20121123
  Receipt Date: 20121123
  Transmission Date: 20130627
  Serious: Yes (Death, Hospitalization)
  Sender: FDA-Public Use
  Company Number: PHHY2012EC106225

PATIENT
  Sex: Male

DRUGS (1)
  1. TEGRETOL RETARD [Suspect]
     Indication: DYSKINESIA
     Dosage: 400 mg, QD
     Route: 048
     Dates: start: 2002

REACTIONS (3)
  - Aspiration [Fatal]
  - Increased upper airway secretion [Unknown]
  - Dysphagia [Unknown]
